FAERS Safety Report 18234787 (Version 4)
Quarter: 2021Q1

REPORT INFORMATION
  Report Type: Report from Study
  Country: US (occurrence: US)
  Receive Date: 20200904
  Receipt Date: 20210120
  Transmission Date: 20210419
  Serious: Yes (Other)
  Sender: FDA-Public Use
  Company Number: US-SEATTLE GENETICS-2020SGN03282

PATIENT
  Sex: Female

DRUGS (1)
  1. TUCATINIB [Suspect]
     Active Substance: TUCATINIB
     Indication: PRODUCT USED FOR UNKNOWN INDICATION
     Dosage: 50 MG, UNK

REACTIONS (6)
  - Gastrostomy [Unknown]
  - Volvulus [Unknown]
  - Diarrhoea [Unknown]
  - Unevaluable event [Unknown]
  - Hospice care [Unknown]
  - Gastrointestinal motility disorder [Unknown]
